FAERS Safety Report 18156539 (Version 1)
Quarter: 2020Q3

REPORT INFORMATION
  Report Type: Spontaneous
  Country: US (occurrence: US)
  Receive Date: 20200817
  Receipt Date: 20200817
  Transmission Date: 20201103
  Serious: No
  Sender: FDA-Public Use
  Company Number: US-PFIZER INC-2017527410

PATIENT
  Age: 80 Year
  Sex: Male
  Weight: 90.72 kg

DRUGS (12)
  1. SYMBICORT [Concomitant]
     Active Substance: BUDESONIDE\FORMOTEROL FUMARATE DIHYDRATE
     Indication: CHRONIC OBSTRUCTIVE PULMONARY DISEASE
     Dosage: UNK UNK, 2X/DAY; [160/4.5 2 PUFFS]
  2. CLOPIDOGREL [Concomitant]
     Active Substance: CLOPIDOGREL BISULFATE
     Indication: ANTICOAGULANT THERAPY
     Dosage: 75 MG, 1X/DAY
     Route: 048
     Dates: start: 201704
  3. XELJANZ XR [Suspect]
     Active Substance: TOFACITINIB CITRATE
     Indication: RHEUMATOID ARTHRITIS
     Dosage: 11 MG, DAILY
  4. AMLODIPINE [Concomitant]
     Active Substance: AMLODIPINE BESYLATE
     Indication: VASODILATATION
     Dosage: 2.5 MG, 1X/DAY
     Route: 048
     Dates: start: 201704
  5. TAMSULOSIN [Concomitant]
     Active Substance: TAMSULOSIN
     Indication: PROSTATE CANCER
     Dosage: 0.4 MG, 1X/DAY; [AFTER MEALS]
     Route: 048
     Dates: start: 2017
  6. ACETAMINOPHEN. [Concomitant]
     Active Substance: ACETAMINOPHEN
     Indication: PAIN
     Dosage: 1950 MG, DAILY (TWO PILLS BY MOUTH IN THE MORNING AND ONE PILL AT NIGHT)
     Route: 048
  7. XELJANZ XR [Suspect]
     Active Substance: TOFACITINIB CITRATE
     Dosage: 11 MG, 1X/DAY
     Route: 048
     Dates: start: 2017
  8. METOPROLOL. [Concomitant]
     Active Substance: METOPROLOL
     Indication: CARDIAC DISORDER
     Dosage: 25 MG, 2X/DAY;[1/2 TABLET TWICE A DAY]
     Route: 048
     Dates: start: 2007
  9. XELJANZ XR [Suspect]
     Active Substance: TOFACITINIB CITRATE
     Dosage: 11 MG, ALTERNATE DAY (ONE TAB EVERY OTHER DAY)
     Dates: start: 20171115
  10. SYMBICORT [Concomitant]
     Active Substance: BUDESONIDE\FORMOTEROL FUMARATE DIHYDRATE
     Dosage: UNK UNK, 2X/DAY; [80/4.5 2 PUFFS]
     Dates: start: 201712
  11. VITAMIN D3 [Concomitant]
     Active Substance: CHOLECALCIFEROL
     Indication: SUPPLEMENTATION THERAPY
     Dosage: 2000 IU, 1X/DAY
     Route: 048
  12. PREDNISONE. [Concomitant]
     Active Substance: PREDNISONE
     Indication: ARTHRITIS
     Dosage: 5 MG, 1X/DAY
     Route: 048

REACTIONS (4)
  - Off label use [Unknown]
  - Product dose omission issue [Not Recovered/Not Resolved]
  - Hypoacusis [Unknown]
  - Product use issue [Unknown]

NARRATIVE: CASE EVENT DATE: 201711
